FAERS Safety Report 4334664-8 (Version None)
Quarter: 2004Q1

REPORT INFORMATION
  Report Type: 
  Country: None (occurrence: None)
  Receive Date: 20040329
  Receipt Date: 20031210
  Transmission Date: 20041129
  Serious: No
  Sender: FDA-Public Use
  Company Number: 03P-163-0244426-00

PATIENT
  Age: 66 Year
  Sex: Male

DRUGS (7)
  1. HUMIRA [Suspect]
     Indication: RHEUMATOID ARTHRITIS
     Dosage: 40 MG, 1 IN 2 WK, SUBCUTANEOUS
     Route: 058
     Dates: start: 20031101, end: 20031101
  2. HUMIRA [Suspect]
     Indication: RHEUMATOID ARTHRITIS
     Dosage: 40 MG, 1 IN 2 WK, SUBCUTANEOUS
     Route: 058
     Dates: start: 20030210
  3. METHOTREXATE [Concomitant]
  4. PROPACET 100 [Concomitant]
  5. ARTHROTEC [Concomitant]
  6. ACETAMINOPHEN W/ CODEINE [Concomitant]
  7. OXYCOCET [Concomitant]

REACTIONS (3)
  - EYE IRRITATION [None]
  - HEADACHE [None]
  - INFLUENZA [None]
